FAERS Safety Report 6573539-0 (Version None)
Quarter: 2010Q1

REPORT INFORMATION
  Report Type: 
  Country: None (occurrence: None)
  Receive Date: 20100204
  Receipt Date: 20100204
  Transmission Date: 20100710
  Serious: Yes (Hospitalization)
  Sender: FDA-Public Use
  Company Number: None

PATIENT
  Age: 69 Year
  Sex: Male
  Weight: 104.9 kg

DRUGS (1)
  1. CARBIDOPA-LEVODOPA [Suspect]
     Indication: PARKINSON'S DISEASE
     Dosage: 1 TAB TID PO
     Route: 048
     Dates: start: 19980911, end: 20100128

REACTIONS (1)
  - HALLUCINATION [None]
